FAERS Safety Report 6192503-7 (Version None)
Quarter: 2009Q2

REPORT INFORMATION
  Report Type: 
  Country: None (occurrence: None)
  Receive Date: 20090518
  Receipt Date: 20090506
  Transmission Date: 20091009
  Serious: Yes (Hospitalization, Other)
  Sender: FDA-Public Use
  Company Number: US-NOVOPROD-270978

PATIENT
  Age: 12 Year
  Sex: Male
  Weight: 51 kg

DRUGS (7)
  1. NOVOSEVEN [Suspect]
     Indication: HAEMARTHROSIS
     Dosage: 14.4 + 9.6 + 4.8
     Route: 042
  2. NOVOSEVEN [Suspect]
     Dosage: 19.2 MG, UNK
     Route: 042
  3. NOVOSEVEN [Suspect]
     Dosage: 24 MG
     Route: 042
  4. TYLENOL W/ CODEINE NO. 3 [Concomitant]
     Dosage: 10-12 CC
     Route: 048
     Dates: start: 20060123, end: 20060314
  5. ZITHROMAX [Concomitant]
     Dosage: 12 ML DAY 1 THEN 6 ML DAY 2-6
     Dates: start: 20060124, end: 20060425
  6. ROBITUSSIN                         /00048001/ [Concomitant]
     Dates: start: 20060124, end: 20061002
  7. FEIBA                              /01034301/ [Concomitant]
     Dates: end: 20050101

REACTIONS (3)
  - HYDRONEPHROSIS [None]
  - JUGULAR VEIN THROMBOSIS [None]
  - SUBCLAVIAN VEIN THROMBOSIS [None]
